FAERS Safety Report 10024285 (Version 2)
Quarter: 2014Q2

REPORT INFORMATION
  Report Type: Spontaneous
  Country: US (occurrence: US)
  Receive Date: 20140320
  Receipt Date: 20140530
  Transmission Date: 20141212
  Serious: Yes (Hospitalization, Other)
  Sender: FDA-Public Use
  Company Number: US-PFIZER INC-2014076690

PATIENT
  Age: 77 Year
  Sex: Female

DRUGS (2)
  1. DETROL LA [Suspect]
     Dosage: UNK
     Dates: start: 2005
  2. DETROL [Suspect]
     Dosage: UNK, TWICE A DAY

REACTIONS (6)
  - Colitis [Unknown]
  - Dyspepsia [Unknown]
  - Renal disorder [Unknown]
  - Renal failure chronic [Unknown]
  - Urinary incontinence [Unknown]
  - Bladder disorder [Unknown]
